FAERS Safety Report 9108480 (Version 2)
Quarter: 2013Q2

REPORT INFORMATION
  Report Type: Spontaneous
  Country: NZ (occurrence: NZ)
  Receive Date: 20130222
  Receipt Date: 20130522
  Transmission Date: 20140414
  Serious: Yes (Hospitalization)
  Sender: FDA-Public Use
  Company Number: NZ-B.I. PHARMACEUTICALS,INC./RIDGEFIELD-2013-AU-00150AU

PATIENT
  Age: 64 Year
  Sex: Male
  Weight: 97.5 kg

DRUGS (9)
  1. PRADAXA [Suspect]
     Indication: EMBOLIC STROKE
     Dosage: 220 MG
     Dates: start: 20121224, end: 20130103
  2. TERAZOSIN [Concomitant]
     Dosage: 4 MG
     Route: 048
  3. QUINAPRIL [Concomitant]
     Dosage: 40 MG
     Route: 048
  4. METOPROLOL [Concomitant]
     Dosage: 190 MG
     Route: 048
  5. SIMVASTATIN [Concomitant]
     Dosage: 80 MG
     Route: 048
  6. FELODIPINE [Concomitant]
     Dosage: 10 MG
     Route: 048
  7. METFORMIN [Concomitant]
     Dosage: 1500 MG
     Route: 048
  8. GLIPIZIDE [Concomitant]
     Dosage: 20 MG
     Route: 048
  9. PROTAPHANE [Concomitant]
     Dosage: 6 UNITS MANE PLUS EXTRA DOSES PRE-DINNER
     Route: 058

REACTIONS (9)
  - Pneumonia [Unknown]
  - Haemoptysis [Recovered/Resolved]
  - Haematuria [Recovered/Resolved]
  - Rectal haemorrhage [Recovered/Resolved]
  - Contusion [Unknown]
  - Purpura [Unknown]
  - Chest pain [Unknown]
  - Rhinitis [Unknown]
  - Lethargy [Unknown]
